FAERS Safety Report 5603804-2 (Version None)
Quarter: 2008Q1

REPORT INFORMATION
  Report Type: 
  Country: None (occurrence: None)
  Receive Date: 20080123
  Receipt Date: 20080111
  Transmission Date: 20080703
  Serious: Yes (Hospitalization)
  Sender: FDA-Public Use
  Company Number: 2008MB000004

PATIENT
  Sex: Male

DRUGS (1)
  1. CEPHALEXIN [Suspect]
     Indication: PURULENT DISCHARGE
     Dosage: 500 MG; QID; PO
     Route: 048
     Dates: start: 20060101, end: 20060101

REACTIONS (4)
  - ALPHA HAEMOLYTIC STREPTOCOCCAL INFECTION [None]
  - BACTERIAL CULTURE POSITIVE [None]
  - ERYSIPELAS [None]
  - SWELLING [None]
